FAERS Safety Report 9103452 (Version 2)
Quarter: 2013Q2

REPORT INFORMATION
  Report Type: Report from Study
  Country: AR (occurrence: AR)
  Receive Date: 20130219
  Receipt Date: 20130513
  Transmission Date: 20140414
  Serious: Yes (Congenital Anomaly)
  Sender: FDA-Public Use
  Company Number: AR-VIIV HEALTHCARE LIMITED-A1012504A

PATIENT
  Age: 0 None
  Sex: Male
  Weight: 3.3 kg

DRUGS (2)
  1. LAMIVUDINE + ZIDOVUDINE [Suspect]
     Indication: ANTIRETROVIRAL THERAPY
     Dosage: 2TAB PER DAY
     Route: 064
     Dates: start: 20101124, end: 20110315
  2. KALETRA [Suspect]
     Indication: ANTIRETROVIRAL THERAPY
     Dosage: 4TAB PER DAY
     Route: 064
     Dates: start: 20101124, end: 20110315

REACTIONS (3)
  - Ventricular septal defect [Unknown]
  - Neonatal disorder [Unknown]
  - Foetal exposure during pregnancy [Unknown]
